FAERS Safety Report 9413756 (Version 2)
Quarter: 2013Q3

REPORT INFORMATION
  Report Type: Report from Study
  Country: KR (occurrence: KR)
  Receive Date: 20130722
  Receipt Date: 20130805
  Transmission Date: 20140515
  Serious: Yes (Death)
  Sender: FDA-Public Use
  Company Number: KR-009507513-1307KOR010187

PATIENT
  Age: 42 Year
  Sex: Male
  Weight: 55.3 kg

DRUGS (20)
  1. VORINOSTAT [Suspect]
     Indication: GASTRIC CANCER
     Dosage: 3ND CHEMOTHERAPY, 400 MG QD
     Route: 048
     Dates: start: 20130620, end: 20130626
  2. VORINOSTAT [Suspect]
     Dosage: 1ST CHEMOTHERAPY
     Route: 048
     Dates: start: 20130424
  3. CAPECITABINE [Suspect]
     Indication: GASTRIC CANCER
     Dosage: 3ND CHEMOTHERAPY, 2200 MG BID
     Route: 048
     Dates: start: 20130620, end: 20130626
  4. CAPECITABINE [Suspect]
     Dosage: 1ST CHEMOTHERAPY
     Route: 048
     Dates: start: 20130424
  5. CISPLATIN [Suspect]
     Indication: GASTRIC CANCER
     Dosage: 3ND CHEMOTHERAPY, 116 MG, QD
     Route: 042
     Dates: start: 20130620, end: 20130620
  6. CISPLATIN [Suspect]
     Dosage: 1ST CHEMOTHERAPY
     Route: 042
     Dates: start: 20130424, end: 20130424
  7. SODIUM BICARBONATE [Concomitant]
     Indication: PROPHYLAXIS
     Dosage: GARGLE-INTERMITTENT
     Dates: start: 20130219
  8. CODEINE [Concomitant]
     Indication: ABDOMINAL PAIN UPPER
     Dosage: DAILY DOSE 2 TAP
     Dates: start: 20130409
  9. ALMAGATE [Concomitant]
     Indication: ABDOMINAL PAIN UPPER
     Dosage: DAILY DOSE 1 PK
     Dates: start: 20130420
  10. CIMETROPIUM BROMIDE [Concomitant]
     Indication: ABDOMINAL PAIN UPPER
     Dosage: DAILY DOSE 1 TAP
     Dates: start: 20130420
  11. REBAMIPIDE [Concomitant]
     Indication: ABDOMINAL PAIN UPPER
     Dosage: DAILY DOSE 1 TAP
     Dates: start: 20130420
  12. FEROBA [Concomitant]
     Indication: IRON DEFICIENCY ANAEMIA
     Dosage: DAILY DOSE 1 TAP
     Dates: start: 20130420
  13. RAMOSETRON [Concomitant]
     Indication: PROPHYLAXIS
     Dosage: UNK
     Dates: start: 20130620
  14. DEXAMETHASONE [Concomitant]
     Indication: PROPHYLAXIS
     Dosage: UNK
     Dates: start: 20130620
  15. DEXAMETHASONE [Concomitant]
     Indication: PROPHYLAXIS
     Dosage: UNK
     Dates: start: 20130621, end: 20130623
  16. RANITIDINE [Concomitant]
     Indication: PROPHYLAXIS
     Dosage: UNK
     Dates: start: 20130621, end: 20130623
  17. APREPITANT [Concomitant]
     Dosage: UNK
     Dates: start: 20130620
  18. APREPITANT [Concomitant]
     Indication: PROPHYLAXIS
     Dosage: UNK
     Dates: start: 20130621, end: 20130622
  19. PHAZYME (SIMETHICONE) [Concomitant]
     Indication: PROPHYLAXIS
     Dosage: UNK
     Dates: start: 20130424
  20. MAGNESIUM OXIDE [Concomitant]
     Indication: PROPHYLAXIS
     Dosage: UNK
     Dates: start: 20130526

REACTIONS (1)
  - Death [Fatal]
